FAERS Safety Report 16075006 (Version 1)
Quarter: 2019Q1

REPORT INFORMATION
  Report Type: Spontaneous
  Country: DE (occurrence: DE)
  Receive Date: 20190315
  Receipt Date: 20190315
  Transmission Date: 20190418
  Serious: Yes (Hospitalization)
  Sender: FDA-Public Use
  Company Number: DE-WHANIN PHARM. CO., LTD.-2019M1023852

PATIENT
  Age: 62 Year
  Sex: Male

DRUGS (18)
  1. LEPONEX [Interacting]
     Active Substance: CLOZAPINE
     Dosage: 200 MILLIGRAM, QD
     Dates: start: 20000225, end: 20000226
  2. GASTROZEPIN [Interacting]
     Active Substance: PIRENZEPINE HYDROCHLORIDE
     Indication: PRODUCT USED FOR UNKNOWN INDICATION
     Dosage: 50 MILLIGRAM, QD
     Dates: start: 20000227, end: 20000228
  3. ESIDRIX [Concomitant]
     Active Substance: HYDROCHLOROTHIAZIDE
     Indication: PRODUCT USED FOR UNKNOWN INDICATION
     Dosage: 2.5 MILLIGRAM, QD
     Dates: start: 20000212
  4. TRUXAL                             /00012101/ [Interacting]
     Active Substance: CHLORPROTHIXENE
     Dosage: 50 MILLIGRAM, QD
     Dates: start: 20000224
  5. LEPONEX [Interacting]
     Active Substance: CLOZAPINE
     Dosage: 300 MILLIGRAM, QD
     Dates: start: 20000208, end: 20000209
  6. TRUXAL                             /00012101/ [Interacting]
     Active Substance: CHLORPROTHIXENE
     Dosage: 100 MILLIGRAM, QD
     Dates: start: 20000225
  7. LEPONEX [Interacting]
     Active Substance: CLOZAPINE
     Dosage: 350 MILLIGRAM, QD
     Dates: start: 20000210, end: 20000216
  8. LEPONEX [Interacting]
     Active Substance: CLOZAPINE
     Dosage: UNK
     Dates: start: 20000219, end: 20000220
  9. ANTRA                              /00661201/ [Concomitant]
     Active Substance: OMEPRAZOLE
     Indication: PRODUCT USED FOR UNKNOWN INDICATION
     Dosage: 40 MILLIGRAM, QD
     Dates: start: 20000224
  10. LEPONEX [Interacting]
     Active Substance: CLOZAPINE
     Dosage: 450 MILLIGRAM, BID
     Dates: start: 1987
  11. LEPONEX [Interacting]
     Active Substance: CLOZAPINE
     Dosage: 400 MILLIGRAM, QD
     Dates: start: 20000217, end: 20000218
  12. TRUXAL                             /00012101/ [Interacting]
     Active Substance: CHLORPROTHIXENE
     Indication: PRODUCT USED FOR UNKNOWN INDICATION
     Dosage: 100 MILLIGRAM, QD
     Dates: end: 20000206
  13. BELOC                              /00030002/ [Concomitant]
     Active Substance: PROPRANOLOL HYDROCHLORIDE
     Indication: PRODUCT USED FOR UNKNOWN INDICATION
     Dosage: 50 MILLIGRAM, QD
     Dates: start: 20000225
  14. BELOC                              /00030002/ [Concomitant]
     Active Substance: PROPRANOLOL HYDROCHLORIDE
     Dosage: 100 MILLIGRAM, QD
     Dates: start: 20000215, end: 20000224
  15. LEPONEX [Interacting]
     Active Substance: CLOZAPINE
     Dosage: 300 MILLIGRAM, QD
     Dates: start: 20000227
  16. LEPONEX [Suspect]
     Active Substance: CLOZAPINE
     Indication: PRODUCT USED FOR UNKNOWN INDICATION
     Dosage: 300 MILLIGRAM, QD
  17. ESIDRIX [Concomitant]
     Active Substance: HYDROCHLOROTHIAZIDE
     Dosage: 1 UNK, QD
     Dates: start: 20000208
  18. LEPONEX [Interacting]
     Active Substance: CLOZAPINE
     Dosage: 400 MILLIGRAM, QD
     Dates: start: 20000221, end: 20000224

REACTIONS (2)
  - Subileus [Unknown]
  - Drug interaction [Unknown]

NARRATIVE: CASE EVENT DATE: 20000229
